FAERS Safety Report 7810380-2 (Version None)
Quarter: 2011Q4

REPORT INFORMATION
  Report Type: 
  Country: None (occurrence: None)
  Receive Date: 20111012
  Receipt Date: 20110927
  Transmission Date: 20120403
  Serious: Yes (Hospitalization)
  Sender: FDA-Public Use
  Company Number: BR-ROCHE-749650

PATIENT
  Sex: Female
  Weight: 80 kg

DRUGS (4)
  1. DOCETAXEL [Suspect]
     Indication: OVARIAN EPITHELIAL CANCER
     Dosage: LAST DOSE PRIOR TO SAE: 16 DEC 2010. FORM: VAILS
     Route: 042
  2. AVASTIN [Suspect]
     Indication: OVARIAN EPITHELIAL CANCER
     Dosage: LAST DOSE PRIOR TO SAE: 16 DEC 2010. FORM: VAILS
     Route: 042
  3. DEXCHLORPHENIRAMINE MALEATE [Concomitant]
  4. MORPHINE [Concomitant]

REACTIONS (1)
  - PNEUMOTHORAX [None]
